FAERS Safety Report 4399177-6 (Version None)
Quarter: 2004Q3

REPORT INFORMATION
  Report Type: 
  Country: None (occurrence: None)
  Receive Date: 20040716
  Receipt Date: 20040712
  Transmission Date: 20050211
  Serious: Yes (Hospitalization)
  Sender: FDA-Public Use
  Company Number: PHNU2004DE02461

PATIENT
  Age: 0 None
  Sex: Male

DRUGS (8)
  1. TEGRETOL [Suspect]
     Indication: EPILEPSY
     Dosage: 150 MG, QD
     Route: 065
     Dates: start: 20040601, end: 20040101
  2. TEGRETOL [Suspect]
     Dosage: 150 MG, BID
     Route: 065
     Dates: start: 20040101, end: 20040101
  3. TEGRETOL [Suspect]
     Dosage: 300 MG, BID
     Route: 065
     Dates: start: 20040101, end: 20040101
  4. TEGRETOL [Suspect]
     Dosage: 450 MG, BID
     Route: 065
     Dates: start: 20040101
  5. VOLTAREN [Suspect]
     Dosage: 1 DF, QD
     Route: 048
     Dates: start: 20040101, end: 20040101
  6. ANTIDEPRESSANTS [Concomitant]
  7. AMUNO [Concomitant]
     Dosage: 25 MG, QD
  8. OMEPRAZOLE [Concomitant]

REACTIONS (3)
  - GASTRITIS [None]
  - VERTIGO [None]
  - VOMITING [None]
